FAERS Safety Report 8426514-5 (Version None)
Quarter: 2012Q2

REPORT INFORMATION
  Report Type: 
  Country: None (occurrence: None)
  Receive Date: 20120611
  Receipt Date: 20120604
  Transmission Date: 20120825
  Serious: Yes (Other)
  Sender: FDA-Public Use
  Company Number: CN-SANOFI-AVENTIS-2012SA039702

PATIENT
  Sex: Male

DRUGS (4)
  1. OXALIPLATIN [Suspect]
     Dosage: ON DAY 1
     Route: 042
  2. FLUOROURACIL [Suspect]
     Dosage: CONTINUOUS IV INFUSION ON DAY 1, 2 OF 14 DAY TREATMENT COURSE
     Route: 042
  3. FLUOROURACIL [Suspect]
     Dosage: INTRAVENOUS BOLUS ON DAY 1, 2 OF 14 DAY TREATMENT COURSE.
     Route: 065
  4. LEUCOVORIN CALCIUM [Suspect]
     Dosage: ON DAY 1 AND DAY 2
     Route: 042

REACTIONS (1)
  - BONE MARROW FAILURE [None]
